FAERS Safety Report 9156884 (Version 1)
Quarter: 2013Q1

REPORT INFORMATION
  Report Type: Spontaneous
  Country: US (occurrence: None)
  Receive Date: 20130211
  Receipt Date: 20130211
  Transmission Date: 20140127
  Serious: No
  Sender: FDA-Public Use
  Company Number: 2013-00045

PATIENT
  Age: 58 Year
  Sex: Female
  Weight: 68.04 kg

DRUGS (2)
  1. ZICAM [Suspect]
     Indication: NASOPHARYNGITIS
     Dosage: 3-4 CHEWS DAILY
     Dates: start: 20130202, end: 20130206
  2. ALBUTEROL [Concomitant]

REACTIONS (2)
  - Anosmia [None]
  - Expired drug administered [None]
